FAERS Safety Report 8998100 (Version 1)
Quarter: 2013Q1

REPORT INFORMATION
  Report Type: Spontaneous
  Country: FR (occurrence: FR)
  Receive Date: 20130104
  Receipt Date: 20130104
  Transmission Date: 20140127
  Serious: Yes (Hospitalization)
  Sender: FDA-Public Use
  Company Number: FR-ABBOTT-12P-056-1029272-00

PATIENT
  Age: 43 Year
  Sex: Female

DRUGS (8)
  1. NORVIR [Suspect]
     Indication: HIV INFECTION
     Route: 048
     Dates: start: 20100518, end: 20100525
  2. NORVIR [Suspect]
     Route: 048
     Dates: start: 20100601
  3. BACTRIM [Suspect]
     Indication: PNEUMOCYSTIS JIROVECII INFECTION
     Route: 048
     Dates: start: 20100509, end: 20100525
  4. TRIFLUCAN [Suspect]
     Indication: OROPHARYNGEAL CANDIDIASIS
     Route: 048
     Dates: start: 20100509, end: 20100525
  5. DARUNAVIR [Suspect]
     Indication: HIV INFECTION
     Route: 048
     Dates: start: 20100518, end: 20100525
  6. DARUNAVIR [Suspect]
     Route: 048
     Dates: start: 20100601
  7. TRUVADA [Suspect]
     Indication: HIV INFECTION
     Route: 048
     Dates: start: 20100518, end: 20100525
  8. TRUVADA [Suspect]
     Route: 048
     Dates: start: 20100601

REACTIONS (7)
  - Rash pruritic [Unknown]
  - Hepatocellular injury [Unknown]
  - Rash macular [Unknown]
  - Rash erythematous [Unknown]
  - Scratch [Unknown]
  - Skin reaction [Unknown]
  - Dyspepsia [Unknown]
